FAERS Safety Report 11344551 (Version 2)
Quarter: 2015Q3

REPORT INFORMATION
  Report Type: Spontaneous
  Country: CN (occurrence: CN)
  Receive Date: 20150806
  Receipt Date: 20150814
  Transmission Date: 20151125
  Serious: Yes (Hospitalization, Other)
  Sender: FDA-Public Use
  Company Number: CN-ASTRAZENECA-2015SE64479

PATIENT
  Age: 53 Year
  Sex: Male

DRUGS (9)
  1. DEXAMETHASONE. [Concomitant]
     Active Substance: DEXAMETHASONE
     Indication: SPUTUM INCREASED
     Dosage: NEBULIZATION OF DEXAMETHASONE TWICE
  2. DEXAMETHASONE. [Concomitant]
     Active Substance: DEXAMETHASONE
     Indication: OROPHARYNGEAL PAIN
     Dosage: NEBULIZATION OF DEXAMETHASONE TWICE
  3. CEFOTIAM [Concomitant]
     Active Substance: CEFOTIAM
     Route: 042
  4. NEXIUM [Suspect]
     Active Substance: ESOMEPRAZOLE MAGNESIUM
     Indication: DYSPEPSIA
     Route: 048
     Dates: start: 201506
  5. NEXIUM [Suspect]
     Active Substance: ESOMEPRAZOLE MAGNESIUM
     Indication: HELICOBACTER INFECTION
     Route: 048
     Dates: start: 201506
  6. NEXIUM [Suspect]
     Active Substance: ESOMEPRAZOLE MAGNESIUM
     Indication: DYSPEPSIA
     Route: 048
     Dates: start: 20150615
  7. NEXIUM I.V. [Suspect]
     Active Substance: ESOMEPRAZOLE SODIUM
     Route: 042
     Dates: start: 201506
  8. IOHEXOL [Concomitant]
     Active Substance: IOHEXOL
     Route: 042
  9. NEXIUM [Suspect]
     Active Substance: ESOMEPRAZOLE MAGNESIUM
     Indication: HELICOBACTER INFECTION
     Route: 048
     Dates: start: 20150615

REACTIONS (3)
  - Chronic gastritis [Unknown]
  - Precancerous mucosal lesion [Recovered/Resolved]
  - Conjunctival haemorrhage [Recovered/Resolved]
